FAERS Safety Report 7367891-6 (Version None)
Quarter: 2011Q1

REPORT INFORMATION
  Report Type: 
  Country: None (occurrence: None)
  Receive Date: 20110322
  Receipt Date: 20110318
  Transmission Date: 20110831
  Serious: Yes (Hospitalization)
  Sender: FDA-Public Use
  Company Number: JP-ABBOTT-11P-087-0709671-00

PATIENT
  Sex: Female
  Weight: 59.1 kg

DRUGS (10)
  1. TEPRENONE [Suspect]
     Indication: NASOPHARYNGITIS
     Route: 048
     Dates: start: 20110222, end: 20110226
  2. TIPEPIDINE HIBENZATE [Suspect]
     Indication: NASOPHARYNGITIS
     Route: 048
     Dates: start: 20110222, end: 20110226
  3. TIPEPIDINE HIBENZATE [Suspect]
     Indication: UPPER RESPIRATORY TRACT INFLAMMATION
  4. FEXOFENADINE HCL [Suspect]
     Indication: NASOPHARYNGITIS
     Route: 048
     Dates: start: 20110222, end: 20110301
  5. MUCODYNE [Suspect]
     Indication: UPPER RESPIRATORY TRACT INFLAMMATION
  6. FEXOFENADINE HCL [Suspect]
     Indication: UPPER RESPIRATORY TRACT INFLAMMATION
  7. KLARICID TABLETS [Suspect]
     Indication: UPPER RESPIRATORY TRACT INFLAMMATION
  8. KLARICID TABLETS [Suspect]
     Indication: NASOPHARYNGITIS
     Route: 048
     Dates: start: 20110222, end: 20110226
  9. MUCODYNE [Suspect]
     Indication: NASOPHARYNGITIS
     Route: 048
     Dates: start: 20110222, end: 20110226
  10. TEPRENONE [Suspect]
     Indication: UPPER RESPIRATORY TRACT INFLAMMATION

REACTIONS (5)
  - GENERALISED ERYTHEMA [None]
  - URTICARIA [None]
  - TOXIC SKIN ERUPTION [None]
  - PRURITUS [None]
  - OEDEMA [None]
